FAERS Safety Report 6730040-9 (Version None)
Quarter: 2010Q2

REPORT INFORMATION
  Report Type: 
  Country: None (occurrence: None)
  Receive Date: 20100518
  Receipt Date: 20100503
  Transmission Date: 20101027
  Serious: Yes (Other)
  Sender: FDA-Public Use
  Company Number: CA-PFIZER INC-2010055435

PATIENT
  Sex: Female

DRUGS (1)
  1. TOLTERODINE TARTRATE [Suspect]

REACTIONS (1)
  - LIP SWELLING [None]
